FAERS Safety Report 6189429-1 (Version None)
Quarter: 2009Q2

REPORT INFORMATION
  Report Type: 
  Country: None (occurrence: None)
  Receive Date: 20090514
  Receipt Date: 20090501
  Transmission Date: 20091009
  Serious: Yes (Death, Hospitalization)
  Sender: FDA-Public Use
  Company Number: GB-TEVA-192063ISR

PATIENT
  Sex: Female

DRUGS (10)
  1. SALBUTAMOL [Suspect]
     Route: 055
  2. METHADONE HCL [Concomitant]
  3. DIAZEPAM [Concomitant]
  4. NIFEDIPINE [Concomitant]
  5. CITALOPRAM HYDROBROMIDE [Concomitant]
  6. PARACETAMOL [Concomitant]
     Indication: TOOTHACHE
  7. SALBUTAMOL [Concomitant]
     Route: 055
  8. FLUTICASONE [Concomitant]
     Route: 055
  9. NICOTINE [Concomitant]
     Route: 062
  10. NICOTINE [Concomitant]
     Route: 055

REACTIONS (1)
  - ASTHMA [None]
